FAERS Safety Report 12729711 (Version 1)
Quarter: 2016Q3

REPORT INFORMATION
  Report Type: Report from Study
  Country: BR (occurrence: BR)
  Receive Date: 20160909
  Receipt Date: 20160909
  Transmission Date: 20161109
  Serious: Yes (Disabling)
  Sender: FDA-Public Use
  Company Number: BR-ABBVIE-16K-020-1720084-00

PATIENT
  Sex: Female
  Weight: 63.3 kg

DRUGS (6)
  1. FOLIC ACID. [Concomitant]
     Active Substance: FOLIC ACID
     Indication: IMMUNE SYSTEM DISORDER
     Route: 048
     Dates: start: 2005
  2. METHOTREXATE. [Concomitant]
     Active Substance: METHOTREXATE
     Indication: ARTHRITIS
     Route: 058
     Dates: start: 2005
  3. ATENOLOL. [Concomitant]
     Active Substance: ATENOLOL
     Indication: HYPERTENSION
     Route: 048
     Dates: start: 2014
  4. HUMIRA [Suspect]
     Active Substance: ADALIMUMAB
     Indication: RHEUMATOID ARTHRITIS
     Route: 058
     Dates: start: 20160429
  5. RANITIDINE. [Concomitant]
     Active Substance: RANITIDINE
     Indication: GASTRIC DISORDER
     Route: 048
     Dates: start: 201605
  6. RANITIDINE. [Concomitant]
     Active Substance: RANITIDINE
     Indication: PROPHYLAXIS

REACTIONS (6)
  - Mobility decreased [Not Recovered/Not Resolved]
  - Blood cholesterol abnormal [Not Recovered/Not Resolved]
  - Dysstasia [Unknown]
  - Arthralgia [Not Recovered/Not Resolved]
  - Activities of daily living impaired [Unknown]
  - Drug ineffective [Unknown]

NARRATIVE: CASE EVENT DATE: 2016
